FAERS Safety Report 8719693 (Version 4)
Quarter: 2015Q4

REPORT INFORMATION
  Report Type: Spontaneous
  Country: US (occurrence: US)
  Receive Date: 20120813
  Receipt Date: 20151202
  Transmission Date: 20160305
  Serious: Yes (Hospitalization)
  Sender: FDA-Public Use
  Company Number: US-BAYER-2012-079001

PATIENT
  Age: 25 Year
  Sex: Female
  Weight: 107 kg

DRUGS (5)
  1. YAZ [Suspect]
     Active Substance: DROSPIRENONE\ETHINYL ESTRADIOL
     Dosage: UNK
     Dates: start: 201005, end: 20100517
  2. ZOCOR [Concomitant]
     Active Substance: SIMVASTATIN
  3. NEXIUM [Concomitant]
     Active Substance: ESOMEPRAZOLE MAGNESIUM
  4. PLAVIX [Concomitant]
     Active Substance: CLOPIDOGREL BISULFATE
  5. GLUCOPHAGE [Concomitant]
     Active Substance: METFORMIN HYDROCHLORIDE
     Indication: POLYCYSTIC OVARIES

REACTIONS (9)
  - Pain [None]
  - Pain [Recovered/Resolved]
  - General physical health deterioration [Recovered/Resolved]
  - Anxiety [None]
  - Hemiplegia [None]
  - Injury [Recovered/Resolved]
  - Emotional distress [None]
  - Embolic stroke [Recovered/Resolved]
  - Mental disorder [None]

NARRATIVE: CASE EVENT DATE: 20100517
